FAERS Safety Report 25600063 (Version 1)
Quarter: 2025Q3

REPORT INFORMATION
  Report Type: Spontaneous
  Country: EU (occurrence: EU)
  Receive Date: 20250724
  Receipt Date: 20250724
  Transmission Date: 20251021
  Serious: Yes (Other)
  Sender: ALKEM
  Company Number: EU-ALKEM LABORATORIES LIMITED-BE-ALKEM-2025-06825

PATIENT
  Age: 4 Year
  Sex: Female

DRUGS (28)
  1. LAMOTRIGINE [Suspect]
     Active Substance: LAMOTRIGINE
     Indication: Epilepsy with myoclonic-atonic seizures
     Route: 065
  2. LAMOTRIGINE [Suspect]
     Active Substance: LAMOTRIGINE
     Indication: Generalised tonic-clonic seizure
  3. LAMOTRIGINE [Suspect]
     Active Substance: LAMOTRIGINE
     Indication: Myoclonic epilepsy
  4. LAMOTRIGINE [Suspect]
     Active Substance: LAMOTRIGINE
     Indication: Clonic convulsion
  5. CLOBAZAM [Suspect]
     Active Substance: CLOBAZAM
     Indication: Myoclonic epilepsy
     Route: 065
  6. CLOBAZAM [Suspect]
     Active Substance: CLOBAZAM
     Indication: Epilepsy with myoclonic-atonic seizures
  7. CLOBAZAM [Suspect]
     Active Substance: CLOBAZAM
     Indication: Generalised tonic-clonic seizure
  8. CLOBAZAM [Suspect]
     Active Substance: CLOBAZAM
     Indication: Clonic convulsion
  9. LEVETIRACETAM [Suspect]
     Active Substance: LEVETIRACETAM
     Indication: Generalised tonic-clonic seizure
     Route: 065
  10. LEVETIRACETAM [Suspect]
     Active Substance: LEVETIRACETAM
     Indication: Epilepsy with myoclonic-atonic seizures
  11. LEVETIRACETAM [Suspect]
     Active Substance: LEVETIRACETAM
     Indication: Myoclonic epilepsy
  12. LEVETIRACETAM [Suspect]
     Active Substance: LEVETIRACETAM
     Indication: Clonic convulsion
  13. PERAMPANEL [Suspect]
     Active Substance: PERAMPANEL
     Indication: Generalised tonic-clonic seizure
     Route: 065
  14. PERAMPANEL [Suspect]
     Active Substance: PERAMPANEL
     Indication: Myoclonic epilepsy
  15. PERAMPANEL [Suspect]
     Active Substance: PERAMPANEL
     Indication: Epilepsy with myoclonic-atonic seizures
  16. PERAMPANEL [Suspect]
     Active Substance: PERAMPANEL
     Indication: Clonic convulsion
  17. CENOBAMATE [Suspect]
     Active Substance: CENOBAMATE
     Indication: Clonic convulsion
     Route: 065
  18. CENOBAMATE [Suspect]
     Active Substance: CENOBAMATE
     Indication: Epilepsy with myoclonic-atonic seizures
  19. CENOBAMATE [Suspect]
     Active Substance: CENOBAMATE
     Indication: Generalised tonic-clonic seizure
  20. CENOBAMATE [Suspect]
     Active Substance: CENOBAMATE
     Indication: Myoclonic epilepsy
  21. PHENOBARBITAL [Suspect]
     Active Substance: PHENOBARBITAL
     Indication: Clonic convulsion
     Route: 065
  22. PHENOBARBITAL [Suspect]
     Active Substance: PHENOBARBITAL
     Indication: Epilepsy with myoclonic-atonic seizures
  23. PHENOBARBITAL [Suspect]
     Active Substance: PHENOBARBITAL
     Indication: Generalised tonic-clonic seizure
  24. PHENOBARBITAL [Suspect]
     Active Substance: PHENOBARBITAL
     Indication: Myoclonic epilepsy
  25. VALPROIC ACID [Suspect]
     Active Substance: VALPROIC ACID
     Indication: Clonic convulsion
     Route: 065
  26. VALPROIC ACID [Suspect]
     Active Substance: VALPROIC ACID
     Indication: Epilepsy with myoclonic-atonic seizures
  27. VALPROIC ACID [Suspect]
     Active Substance: VALPROIC ACID
     Indication: Generalised tonic-clonic seizure
  28. VALPROIC ACID [Suspect]
     Active Substance: VALPROIC ACID
     Indication: Myoclonic epilepsy

REACTIONS (4)
  - Seizure [Unknown]
  - Condition aggravated [Unknown]
  - Therapy non-responder [Unknown]
  - Therapy partial responder [Unknown]
